FAERS Safety Report 18526745 (Version 1)
Quarter: 2020Q4

REPORT INFORMATION
  Report Type: Spontaneous
  Country: US (occurrence: US)
  Receive Date: 20201120
  Receipt Date: 20201120
  Transmission Date: 20210114
  Serious: Yes (Life-Threatening, Hospitalization)
  Sender: FDA-Public Use
  Company Number: US-SA-2020SA324652

PATIENT

DRUGS (2)
  1. ASPIRINE [Suspect]
     Active Substance: ASPIRIN
  2. ICY HOT (MENTHOL) [Suspect]
     Active Substance: MENTHOL

REACTIONS (1)
  - Drug hypersensitivity [Unknown]
